FAERS Safety Report 7877345-6 (Version None)
Quarter: 2011Q4

REPORT INFORMATION
  Report Type: 
  Country: None (occurrence: None)
  Receive Date: 20111031
  Receipt Date: 20111019
  Transmission Date: 20120403
  Serious: Yes (Death, Other)
  Sender: FDA-Public Use
  Company Number: GB-BRISTOL-MYERS SQUIBB COMPANY-16145526

PATIENT
  Age: 60 Year
  Sex: Female
  Weight: 69 kg

DRUGS (3)
  1. BENDROFLUMETHIAZIDE [Concomitant]
  2. YERVOY [Suspect]
     Indication: METASTATIC MALIGNANT MELANOMA
     Route: 042
     Dates: start: 20101217, end: 20110111
  3. DACARBAZINE [Concomitant]
     Indication: MALIGNANT MELANOMA

REACTIONS (25)
  - ENTEROCOLITIS [None]
  - SCAR [None]
  - GASTRIC HAEMORRHAGE [None]
  - ENTEROCOCCUS TEST POSITIVE [None]
  - DIARRHOEA [None]
  - METASTASES TO KIDNEY [None]
  - GENERAL PHYSICAL HEALTH DETERIORATION [None]
  - OEDEMA PERIPHERAL [None]
  - OESOPHAGEAL HAEMORRHAGE [None]
  - ABDOMINAL PAIN [None]
  - LARGE INTESTINE PERFORATION [None]
  - SUBDIAPHRAGMATIC ABSCESS [None]
  - SEPSIS [None]
  - PERITONEAL ADHESIONS [None]
  - ESCHERICHIA TEST POSITIVE [None]
  - METASTASES TO LUNG [None]
  - HAEMATEMESIS [None]
  - OESOPHAGITIS [None]
  - GASTROINTESTINAL NECROSIS [None]
  - KLEBSIELLA TEST POSITIVE [None]
  - ABDOMINAL SEPSIS [None]
  - LARGE INTESTINAL ULCER [None]
  - INFECTIOUS PERITONITIS [None]
  - ABDOMINAL WOUND DEHISCENCE [None]
  - SEROSITIS [None]
